FAERS Safety Report 17917617 (Version 1)
Quarter: 2020Q2

REPORT INFORMATION
  Report Type: Spontaneous
  Country: US (occurrence: US)
  Receive Date: 20200619
  Receipt Date: 20200619
  Transmission Date: 20200714
  Serious: No
  Sender: FDA-Public Use
  Company Number: US-BAUSCH-BL-2020-017314

PATIENT
  Age: 67 Year
  Sex: Female

DRUGS (3)
  1. NEOMYCIN/POLYMYXIN B SULFATES BACITRACIN ZINC/HYDROCORTISONE OPHT OINT [Suspect]
     Active Substance: BACITRACIN ZINC\HYDROCORTISONE\NEOMYCIN SULFATE\POLYMYXIN B SULFATE
     Indication: EYE INFECTION
     Dosage: AT ONE STRIP TWICE A DAY INTO BOTH HER EYES
     Route: 047
     Dates: start: 20200612, end: 20200612
  2. LUMIFY [Suspect]
     Active Substance: BRIMONIDINE TARTRATE
     Indication: OCULAR HYPERAEMIA
     Dosage: IN THE MORNING, USING FOR ABOUT A YEAR
     Route: 047
     Dates: start: 2019
  3. REFRESH CELLUVISC [Suspect]
     Active Substance: CARBOXYMETHYLCELLULOSE SODIUM
     Indication: PRODUCT USED FOR UNKNOWN INDICATION
     Dosage: DROPS
     Route: 047

REACTIONS (2)
  - Ocular hyperaemia [Recovering/Resolving]
  - Eye irritation [Recovering/Resolving]

NARRATIVE: CASE EVENT DATE: 20200612
